FAERS Safety Report 15635073 (Version 1)
Quarter: 2018Q4

REPORT INFORMATION
  Report Type: Other
  Country: None (occurrence: ES)
  Receive Date: 20181119
  Receipt Date: 20181119
  Transmission Date: 20190205
  Serious: Yes (Life-Threatening)
  Sender: FDA-Public Use
  Company Number: ES-ACIC FINE CHEMICALS INC-2059040

PATIENT
  Age: 66 Year

DRUGS (4)
  1. RANITIDINE. [Suspect]
     Active Substance: RANITIDINE
  2. CARBOPLATIN. [Concomitant]
     Active Substance: CARBOPLATIN
  3. PACLITAXEL. [Concomitant]
     Active Substance: PACLITAXEL
  4. SIMVASTATIN. [Suspect]
     Active Substance: SIMVASTATIN

REACTIONS (2)
  - Prinzmetal angina [None]
  - Anaphylactic shock [None]
